FAERS Safety Report 19657518 (Version 1)
Quarter: 2021Q3

REPORT INFORMATION
  Report Type: Spontaneous
  Country: CN (occurrence: CN)
  Receive Date: 20210804
  Receipt Date: 20210804
  Transmission Date: 20211014
  Serious: Yes (Hospitalization)
  Sender: FDA-Public Use
  Company Number: CN-BAXTER-2021BAX023204

PATIENT
  Age: 6 Year
  Sex: Male
  Weight: 19 kg

DRUGS (27)
  1. AOLUONA (TOPOTECAN HYDROCHLORIDE) [Suspect]
     Active Substance: TOPOTECAN HYDROCHLORIDE
     Indication: NEUROBLASTOMA
     Dosage: TOPOTECAN HYDROCHLORIDE 0.918 MG + 0.9% SODIUM CHLORIDE 250ML
     Route: 041
     Dates: start: 20190416, end: 20190420
  2. NENGQILANG [Suspect]
     Active Substance: UBIDECARENONE
     Indication: NUTRITIONAL SUPPLEMENTATION
     Dosage: DOSAGE FORM: TABLETS
     Route: 048
     Dates: start: 20190416, end: 20190429
  3. LVTINGNUO [GLUTATHIONE] [Suspect]
     Active Substance: GLUTATHIONE
     Dosage: DOSE RE?INTRODUCED; REDUCED GLUTATHIONE + 0.9% SODIUM CHLORIDE
     Route: 041
  4. NUOWEI [Suspect]
     Active Substance: PALONOSETRON HYDROCHLORIDE
     Dosage: DOSE RE?INTRODUCED; PARONOSETRON HYDROCHLORIDE + 5% GLUCOSE
     Route: 041
  5. RECOMBINANT HUMAN GRANULOCYTE COLONY?STIMULATING FACTOR [Concomitant]
     Active Substance: GRANULOCYTE COLONY-STIMULATING FACTOR NOS
     Route: 058
     Dates: start: 20190421, end: 201904
  6. 0.9% SODIUM CHLORIDE INJECTION [Suspect]
     Active Substance: SODIUM CHLORIDE
     Dosage: TOPOTECAN HYDROCHLORIDE 0.918 MG + 0.9% SODIUM CHLORIDE 250ML
     Route: 041
     Dates: start: 20190416, end: 20190420
  7. NENGQILANG [Suspect]
     Active Substance: UBIDECARENONE
     Dosage: DOSAGE FORM: TABLETS; DOSE RE?INTRODUCED
     Route: 048
  8. ENDOXAN [Suspect]
     Active Substance: CYCLOPHOSPHAMIDE
     Dosage: DOSE RE?INTRODUCED; ENDOXAN + 0.9% SODIUM CHLORIDE
     Route: 041
  9. 0.9% SODIUM CHLORIDE INJECTION [Suspect]
     Active Substance: SODIUM CHLORIDE
     Dosage: DOSE RE?INTRODUCED; TOPOTECAN HYDROCHLORIDE + 0.9% SODIUM CHLORIDE
     Route: 041
  10. NUOWEI [Suspect]
     Active Substance: PALONOSETRON HYDROCHLORIDE
     Indication: ANTIEMETIC SUPPORTIVE CARE
     Dosage: PARONOSETRON HYDROCHLORIDE 0.15 MG + 5% GLUCOSE 100ML
     Route: 041
     Dates: start: 20190416, end: 20190421
  11. ENDOXAN [Suspect]
     Active Substance: CYCLOPHOSPHAMIDE
     Indication: NEUROBLASTOMA
     Dosage: ENDOXAN 300 MG + 0.9% SODIUM CHLORIDE 250 ML
     Route: 041
     Dates: start: 20190416, end: 20190420
  12. 0.9% SODIUM CHLORIDE INJECTION [Suspect]
     Active Substance: SODIUM CHLORIDE
     Dosage: DOSE RE?INTRODUCED; REDUCED GLUTATHIONE  + 0.9% SODIUM CHLORIDE
     Route: 041
  13. 5% GLUCOSE  INJECTION [Suspect]
     Active Substance: DEXTROSE
     Indication: MEDICATION DILUTION
     Dosage: PARONOSETRON HYDROCHLORIDE 0.15 MG + 5% GLUCOSE 100ML
     Route: 041
     Dates: start: 20190416, end: 20190421
  14. RECOMBINANT HUMAN GRANULOCYTE COLONY?STIMULATING FACTOR [Concomitant]
     Active Substance: GRANULOCYTE COLONY-STIMULATING FACTOR NOS
     Indication: WHITE BLOOD CELL COUNT DECREASED
     Route: 058
     Dates: start: 20190418, end: 20190419
  15. 0.9% SODIUM CHLORIDE INJECTION [Suspect]
     Active Substance: SODIUM CHLORIDE
     Indication: MEDICATION DILUTION
     Dosage: ENDOXAN 300 MG + 0.9% SODIUM CHLORIDE 250 ML
     Route: 041
     Dates: start: 20190416, end: 20190420
  16. 0.9% SODIUM CHLORIDE INJECTION [Suspect]
     Active Substance: SODIUM CHLORIDE
     Dosage: MESNA 60 MG + 0.9% SODIUM CHLORIDE 50 ML; BEFORE, AFTER, 3H AFTER, 6H AFTER AND 9H AFTER ENDOXAN
     Route: 041
     Dates: start: 20190416, end: 20190420
  17. AOLUONA (TOPOTECAN HYDROCHLORIDE) [Suspect]
     Active Substance: TOPOTECAN HYDROCHLORIDE
     Dosage: DOSE RE?INTRODUCED; TOPOTECAN HYDROCHLORIDE + 0.9% SODIUM CHLORIDE
     Route: 041
  18. PRILOSEC [Suspect]
     Active Substance: OMEPRAZOLE MAGNESIUM
     Indication: PROPHYLAXIS
     Route: 040
     Dates: start: 20190416, end: 20190421
  19. PRILOSEC [Suspect]
     Active Substance: OMEPRAZOLE MAGNESIUM
     Dosage: DOSE RE?INTRODUCED
     Route: 040
  20. 0.9% SODIUM CHLORIDE INJECTION [Suspect]
     Active Substance: SODIUM CHLORIDE
     Dosage: DOSE RE?INTRODUCED; ENDOXAN + 0.9% SODIUM CHLORIDE
     Route: 041
  21. 5% GLUCOSE  INJECTION [Suspect]
     Active Substance: DEXTROSE
     Dosage: DOSE RE?INTRODUCED; PARONOSETRON HYDROCHLORIDE + 5% GLUCOSE
     Route: 041
  22. MEI AN [Suspect]
     Active Substance: MESNA
     Indication: DRUG DETOXIFICATION
     Dosage: MESNA 60 MG + 0.9% SODIUM CHLORIDE 50 ML; BEFORE, AFTER, 3H AFTER, 6H AFTER AND 9H AFTER ENDOXAN
     Route: 041
     Dates: start: 20190416, end: 20190420
  23. 0.9% SODIUM CHLORIDE INJECTION [Suspect]
     Active Substance: SODIUM CHLORIDE
     Dosage: REDUCED GLUTATHIONE 1.2 G + 0.9% SODIUM CHLORIDE 100 ML
     Route: 041
     Dates: start: 20190416, end: 20190425
  24. MEI AN [Suspect]
     Active Substance: MESNA
     Dosage: DOSE RE?INTRODUCED; MESNA + 0.9% SODIUM CHLORIDE
     Route: 041
  25. LVTINGNUO [GLUTATHIONE] [Suspect]
     Active Substance: GLUTATHIONE
     Indication: PROPHYLAXIS
     Dosage: REDUCED GLUTATHIONE 1.2 G + 0.9% SODIUM CHLORIDE 100 ML
     Route: 041
     Dates: start: 20190416, end: 20190425
  26. 0.9% SODIUM CHLORIDE INJECTION [Suspect]
     Active Substance: SODIUM CHLORIDE
     Dosage: DOSE RE?INTRODUCED; MESNA + 0.9% SODIUM CHLORIDE
     Route: 041
  27. RECOMBINANT HUMAN GRANULOCYTE COLONY?STIMULATING FACTOR [Concomitant]
     Active Substance: GRANULOCYTE COLONY-STIMULATING FACTOR NOS
     Route: 058
     Dates: start: 20190423, end: 20190424

REACTIONS (1)
  - Myelosuppression [Recovering/Resolving]

NARRATIVE: CASE EVENT DATE: 20190425
